FAERS Safety Report 5168112-5 (Version None)
Quarter: 2006Q4

REPORT INFORMATION
  Report Type: 
  Country: None (occurrence: None)
  Receive Date: 20061208
  Receipt Date: 20061108
  Transmission Date: 20070319
  Serious: Yes (Hospitalization)
  Sender: FDA-Public Use
  Company Number: HQWYE120110NOV06

PATIENT
  Sex: Male
  Weight: 61 kg

DRUGS (8)
  1. ENBREL [Suspect]
     Indication: RHEUMATOID ARTHRITIS
     Route: 058
     Dates: start: 20060902, end: 20061002
  2. RHEUMATREX [Suspect]
     Indication: RHEUMATOID ARTHRITIS
     Dosage: UNKNOWN
     Route: 048
     Dates: start: 20060401, end: 20061001
  3. FOLIAMIN [Concomitant]
     Indication: FOLATE DEFICIENCY
     Dosage: UNKNOWN
     Route: 048
     Dates: start: 20060401, end: 20061001
  4. COMELIAN [Concomitant]
     Route: 048
     Dates: start: 20040101, end: 20061001
  5. BLOPRESS [Concomitant]
     Indication: RHEUMATOID ARTHRITIS
     Route: 048
     Dates: start: 20040101
  6. CYANOCOBALAMIN [Concomitant]
     Route: 048
     Dates: start: 20040101, end: 20061001
  7. PRORENAL [Concomitant]
     Route: 048
     Dates: start: 20040101, end: 20061001
  8. PREDONINE [Concomitant]
     Indication: RHEUMATOID ARTHRITIS
     Route: 048
     Dates: start: 20060401

REACTIONS (2)
  - LIVER DISORDER [None]
  - LYMPHOCYTE STIMULATION TEST POSITIVE [None]
